FAERS Safety Report 18516758 (Version 1)
Quarter: 2020Q4

REPORT INFORMATION
  Report Type: Spontaneous
  Country: US (occurrence: US)
  Receive Date: 20201118
  Receipt Date: 20201118
  Transmission Date: 20210114
  Serious: No
  Sender: FDA-Public Use
  Company Number: US-GLAXOSMITHKLINE-US2020224261

PATIENT

DRUGS (2)
  1. VOLTAREN [Suspect]
     Active Substance: DICLOFENAC SODIUM
     Indication: COMPLEX REGIONAL PAIN SYNDROME
     Dosage: UNK UNK, QD DAILY
  2. KRATOM (MITRAGYNA SPECIOSA) [Concomitant]
     Active Substance: HERBALS\MITRAGYNINE
     Indication: COMPLEX REGIONAL PAIN SYNDROME
     Dosage: UNK UNK, QD DAILY

REACTIONS (2)
  - Therapeutic product effect incomplete [Unknown]
  - Product use in unapproved indication [Unknown]
